FAERS Safety Report 20884654 (Version 1)
Quarter: 2022Q2

REPORT INFORMATION
  Report Type: Spontaneous
  Country: IT (occurrence: IT)
  Receive Date: 20220527
  Receipt Date: 20220527
  Transmission Date: 20220721
  Serious: Yes (Hospitalization, Other)
  Sender: FDA-Public Use
  Company Number: IT-GILEAD-2022-0583031

PATIENT
  Age: 49 Year
  Sex: Male

DRUGS (6)
  1. VIREAD [Suspect]
     Active Substance: TENOFOVIR DISOPROXIL FUMARATE
     Indication: HIV infection
     Dosage: 245 MG, QD
     Route: 065
  2. DARUNAVIR [Concomitant]
     Active Substance: DARUNAVIR
     Dosage: 800 MG, QD
  3. RITONAVIR [Concomitant]
     Active Substance: RITONAVIR
     Dosage: 100 MG, QD
  4. LAMIVUDINE [Concomitant]
     Active Substance: LAMIVUDINE
     Dosage: 300 MG, QD
  5. VALGANCICLOVIR [Concomitant]
     Active Substance: VALGANCICLOVIR
     Dosage: 900 MG, QD
  6. FLUCONAZOLE [Concomitant]
     Active Substance: FLUCONAZOLE
     Dosage: 800 MG, QD

REACTIONS (1)
  - Immune reconstitution inflammatory syndrome [Unknown]
